FAERS Safety Report 9302934 (Version 1)
Quarter: 2013Q2

REPORT INFORMATION
  Report Type: Spontaneous
  Country: KR (occurrence: KR)
  Receive Date: 20130522
  Receipt Date: 20130522
  Transmission Date: 20140414
  Serious: Yes (Other)
  Sender: FDA-Public Use
  Company Number: KR-GENZYME-THYR-1000915

PATIENT
  Age: 52 Year
  Sex: Female

DRUGS (2)
  1. THYROGEN [Suspect]
     Indication: PRODUCT USED FOR UNKNOWN INDICATION
     Dosage: 1 VIAL, ONCE
     Route: 065
     Dates: start: 20130511, end: 20130511
  2. THYROGEN [Suspect]
     Dosage: 1 VIAL, ONCE
     Route: 065
     Dates: start: 20130513, end: 20130513

REACTIONS (2)
  - Atrial fibrillation [Recovered/Resolved]
  - Inappropriate schedule of drug administration [Unknown]
